FAERS Safety Report 14295635 (Version 2)
Quarter: 2019Q3

REPORT INFORMATION
  Report Type: Spontaneous
  Country: FR (occurrence: FR)
  Receive Date: 20171218
  Receipt Date: 20190920
  Transmission Date: 20191004
  Serious: Yes (Hospitalization)
  Sender: FDA-Public Use
  Company Number: FR-ROCHE-2041971

PATIENT
  Age: 56 Year
  Sex: Male
  Weight: 87 kg

DRUGS (11)
  1. AVLOCARDYL [PROPRANOLOL] [Concomitant]
     Active Substance: PROPRANOLOL HYDROCHLORIDE
     Indication: PORTAL HYPERTENSION
     Dosage: 40 MG, BID
     Route: 065
     Dates: start: 2014
  2. NOROXINE [Concomitant]
     Active Substance: NORFLOXACIN
     Indication: PORTAL HYPERTENSION
     Dosage: 400 MG, QD
     Route: 065
     Dates: start: 20150511
  3. HUMAN SERUM ALBUMIN [Concomitant]
     Active Substance: ALBUMIN HUMAN
     Indication: ASCITES
     Dosage: 100 ML, TID
     Route: 065
     Dates: start: 20141027, end: 20150314
  4. COPEGUS [Suspect]
     Active Substance: RIBAVIRIN
     Indication: CHRONIC HEPATITIS C
     Dosage: MOST RECENT DOSE WAS RECEIVED ON 28/MAR/2015
     Route: 065
     Dates: start: 20150105, end: 20150328
  5. TERCIAN [CYAMEMAZINE] [Concomitant]
     Active Substance: CYAMEMAZINE
     Dosage: UNK
     Route: 065
     Dates: start: 201401
  6. KALEORID [Concomitant]
     Active Substance: POTASSIUM CHLORIDE
     Indication: HYPOKALAEMIA
     Dosage: 600 MG, QD
     Route: 065
     Dates: start: 20150105, end: 2015
  7. ALDACTONE [Concomitant]
     Active Substance: SPIRONOLACTONE
     Indication: POLYURIA
     Dosage: 75 MG, QD
     Route: 065
     Dates: start: 2014, end: 2015
  8. BURINEX [Concomitant]
     Active Substance: BUMETANIDE
     Indication: POLYURIA
     Dosage: 3 MG, QD
     Route: 065
     Dates: start: 2014, end: 2015
  9. VIRAFERONPEG [Suspect]
     Active Substance: PEGINTERFERON ALFA-2B
     Indication: CHRONIC HEPATITIS C
     Dosage: UNK
     Route: 065
     Dates: start: 1990, end: 1991
  10. RIBAVIRIN. [Suspect]
     Active Substance: RIBAVIRIN
     Indication: CHRONIC HEPATITIS C
     Dosage: UNK
     Route: 048
     Dates: start: 1990, end: 1991
  11. HARVONI [Suspect]
     Active Substance: LEDIPASVIR\SOFOSBUVIR
     Indication: CHRONIC HEPATITIS C
     Dosage: 400/90 MG, QD?MOST RECENT DOSE WAS RECEIVED ON 28/MAR/2015
     Route: 065
     Dates: start: 20150105, end: 20150328

REACTIONS (6)
  - Asthenia [Recovered/Resolved]
  - Therapy non-responder [Unknown]
  - Umbilical hernia [Recovered/Resolved]
  - Hepatic cirrhosis [Recovered/Resolved]
  - Oedema peripheral [Recovered/Resolved]
  - Ascites [Recovered/Resolved]

NARRATIVE: CASE EVENT DATE: 20150302
